FAERS Safety Report 8418114-8 (Version None)
Quarter: 2012Q2

REPORT INFORMATION
  Report Type: 
  Country: None (occurrence: None)
  Receive Date: 20120604
  Receipt Date: 20120604
  Transmission Date: 20120825
  Serious: Yes (Disabling)
  Sender: FDA-Public Use
  Company Number: None

PATIENT
  Age: 78 Year
  Sex: Female
  Weight: 62.5964 kg

DRUGS (1)
  1. PREDNISONE [Suspect]
     Indication: PLATELET COUNT DECREASED
     Dosage: 40MG DLY PO
     Route: 048
     Dates: start: 20120524, end: 20120603

REACTIONS (2)
  - ASTHENIA [None]
  - BALANCE DISORDER [None]
